FAERS Safety Report 5371294-3 (Version None)
Quarter: 2007Q2

REPORT INFORMATION
  Report Type: 
  Country: None (occurrence: None)
  Receive Date: 20070615
  Receipt Date: 20070122
  Transmission Date: 20071010
  Serious: Yes (Hospitalization)
  Sender: FDA-Public Use
  Company Number: 200618611US

PATIENT
  Age: 82 Year
  Sex: Female

DRUGS (15)
  1. LANTUS [Suspect]
     Indication: DIABETES MELLITUS NON-INSULIN-DEPENDENT
     Dosage: 12 U
     Dates: start: 20061009
  2. LANTUS [Suspect]
     Indication: DIABETES MELLITUS NON-INSULIN-DEPENDENT
     Dosage: 10 U QAM
  3. OPTICLIK [Suspect]
     Dates: start: 20061009
  4. OPTICLIK [Suspect]
  5. PIOGLITAZONE [Concomitant]
  6. ACETYLSALICYLIC ACID (BABY ASPIRIN) [Concomitant]
  7. VALSARTAN (DIOVANE) [Concomitant]
  8. LEVOTHYROXINE SODIUM (LEVOTHROID) [Concomitant]
  9. ACETYLSALICYLIC ACID (NOVASEN0 [Concomitant]
  10. TIMOLOL MALEATE [Concomitant]
  11. ZOCOR [Concomitant]
  12. DOCUSATE SODIUM [Concomitant]
  13. TEMAZEPAM (RESTORIL /00393701/) [Concomitant]
  14. LEVOTHYROXINE SODIUM (SYTHROID) [Concomitant]
  15. APIDRA [Concomitant]

REACTIONS (1)
  - HYPERGLYCAEMIA [None]
